FAERS Safety Report 4722164-2 (Version None)
Quarter: 2005Q3

REPORT INFORMATION
  Report Type: 
  Country: None (occurrence: None)
  Receive Date: 20050722
  Receipt Date: 20040819
  Transmission Date: 20060218
  Serious: No
  Sender: FDA-Public Use
  Company Number: US-GLAXOSMITHKLINE-A0522819A

PATIENT
  Age: 62 Year
  Sex: Male

DRUGS (7)
  1. AVANDIA [Suspect]
     Dosage: 4MG PER DAY
     Route: 048
     Dates: start: 20040816
  2. METFORMIN [Concomitant]
  3. VIOXX [Concomitant]
  4. ALLOPURINOL [Concomitant]
  5. TRIAMTERENE [Concomitant]
  6. ENALAPRIL [Concomitant]
  7. MULTI-VITAMIN [Concomitant]

REACTIONS (1)
  - STOMACH DISCOMFORT [None]
